FAERS Safety Report 6017249-7 (Version None)
Quarter: 2008Q4

REPORT INFORMATION
  Report Type: 
  Country: None (occurrence: None)
  Receive Date: 20081223
  Receipt Date: 20081212
  Transmission Date: 20090506
  Serious: Yes (Other)
  Sender: FDA-Public Use
  Company Number: US-BAYER-200840699NA

PATIENT
  Sex: Female

DRUGS (3)
  1. AVELOX [Suspect]
     Indication: DRUG USE FOR UNKNOWN INDICATION
  2. MOTRIN [Concomitant]
  3. TORADOL [Concomitant]

REACTIONS (7)
  - ABDOMINAL PAIN UPPER [None]
  - ANXIETY [None]
  - DIARRHOEA [None]
  - DYSPHAGIA [None]
  - FATIGUE [None]
  - HALLUCINATION [None]
  - MEMORY IMPAIRMENT [None]
